FAERS Safety Report 4855885-1 (Version None)
Quarter: 2005Q4

REPORT INFORMATION
  Report Type: 
  Country: None (occurrence: None)
  Receive Date: 20051216
  Receipt Date: 20051212
  Transmission Date: 20060501
  Serious: Yes (Disabling, Other)
  Sender: FDA-Public Use
  Company Number: 2005CG02062

PATIENT
  Sex: Male

DRUGS (2)
  1. XYLOCAINE [Suspect]
     Indication: EPIDURAL ANAESTHESIA
     Route: 008
  2. MARCAINE [Suspect]
     Indication: EPIDURAL ANAESTHESIA
     Route: 008

REACTIONS (2)
  - PARAPLEGIA [None]
  - POST PROCEDURAL COMPLICATION [None]
